FAERS Safety Report 13967358 (Version 2)
Quarter: 2017Q4

REPORT INFORMATION
  Report Type: Report from Study
  Country: US (occurrence: US)
  Receive Date: 20170914
  Receipt Date: 20171003
  Transmission Date: 20180320
  Serious: Yes (Hospitalization, Other)
  Sender: FDA-Public Use
  Company Number: US-BRISTOL-MYERS SQUIBB COMPANY-BMS-2017-080620

PATIENT
  Age: 55 Year
  Sex: Male
  Weight: 80 kg

DRUGS (4)
  1. IPILIMUMAB [Suspect]
     Active Substance: IPILIMUMAB
     Indication: NEUROENDOCRINE CARCINOMA
     Dosage: 1 MG/KG, TOTAL DOSE 80 MG
     Route: 042
     Dates: start: 20170621, end: 20170621
  2. NIVOLUMAB [Suspect]
     Active Substance: NIVOLUMAB
     Indication: PRODUCT USED FOR UNKNOWN INDICATION
     Dosage: 240 MG, Q2WK
     Route: 042
     Dates: start: 20170804, end: 20170816
  3. NIVOLUMAB [Suspect]
     Active Substance: NIVOLUMAB
     Indication: NEUROENDOCRINE CARCINOMA
     Dosage: 240 MG, Q2WK
     Route: 042
     Dates: start: 20170621, end: 20170705
  4. IPILIMUMAB [Suspect]
     Active Substance: IPILIMUMAB
     Indication: PRODUCT USED FOR UNKNOWN INDICATION
     Dosage: 1 MG/KG, TOTAL DOSE 80 MG
     Route: 042
     Dates: start: 20170804, end: 20170804

REACTIONS (4)
  - Autoimmune disorder [Unknown]
  - Colitis [Unknown]
  - Thyroiditis [Unknown]
  - Sinusitis [Recovering/Resolving]

NARRATIVE: CASE EVENT DATE: 20170727
